FAERS Safety Report 9266704 (Version 6)
Quarter: 2014Q1

REPORT INFORMATION
  Report Type: Spontaneous
  Country: US (occurrence: US)
  Receive Date: 20130502
  Receipt Date: 20140128
  Transmission Date: 20141002
  Serious: Yes (Death, Life-Threatening, Hospitalization, Other)
  Sender: FDA-Public Use
  Company Number: US-PFIZER INC-2013133344

PATIENT
  Age: 64 Year
  Sex: Female
  Weight: 58.7 kg

DRUGS (15)
  1. XELJANZ [Suspect]
     Indication: RHEUMATOID ARTHRITIS
     Dosage: 5 MG, 2X/DAY (BID)
     Route: 048
     Dates: start: 20130131, end: 20130411
  2. ENBREL [Suspect]
     Dosage: UNK
  3. ORENCIA [Suspect]
     Dosage: 12.5 MG, QWK
  4. HUMIRA [Suspect]
     Dosage: UNK
  5. LISINOPRIL [Concomitant]
     Dosage: 20 MG, 1X/DAY (QD)
  6. LISINOPRIL [Concomitant]
     Dosage: 12.5 MG, 1X/DAY (QD)
  7. MOTRIN [Concomitant]
     Dosage: 800 MG, 3X/DAY (TID)
  8. ARAVA [Concomitant]
     Dosage: 20 MG, 1X/DAY (QD)
  9. ZOLOFT [Concomitant]
     Dosage: 50 MG, 2X/DAY (BID)
  10. ZOLOFT [Concomitant]
     Dosage: 100 MG, 1X/DAY (QAM)
     Route: 048
     Dates: start: 20130417
  11. VITAMIN D [Concomitant]
     Dosage: 50000 UNK, QWK
  12. NEXIUM [Concomitant]
     Dosage: 40 MG, 1X/DAY (QD)
  13. NUVIGIL [Concomitant]
     Dosage: 150 UNK, 1X/DAY (QD/PRN)
  14. ACTEMRA [Concomitant]
     Dosage: 4 MG, UNK
  15. HYDROCODONE [Concomitant]
     Dosage: UNK, TID

REACTIONS (72)
  - Encephalopathy [Unknown]
  - Hyponatraemia [Fatal]
  - Mental status changes [Fatal]
  - Convulsion [Unknown]
  - Delirium [Fatal]
  - Altered state of consciousness [Unknown]
  - Cerebral infarction [Fatal]
  - Cerebral thrombosis [Unknown]
  - Skin ulcer [Unknown]
  - Upper gastrointestinal haemorrhage [Unknown]
  - Haemoglobin decreased [Unknown]
  - Cerebellar infarction [Unknown]
  - Mastoid effusion [Unknown]
  - Pain [Unknown]
  - Pulmonary valve incompetence [Unknown]
  - Drug dependence [Unknown]
  - Asthenia [Unknown]
  - Rheumatoid nodule [Unknown]
  - Gout [Unknown]
  - Joint swelling [Unknown]
  - Purulent discharge [Unknown]
  - Arthritis [Unknown]
  - Drug ineffective [Unknown]
  - Cardiac aneurysm [Fatal]
  - Cerebrovascular accident [Fatal]
  - Tachycardia [Fatal]
  - Gastrointestinal haemorrhage [Fatal]
  - Mitral valve stenosis [Fatal]
  - Chest pain [Fatal]
  - Tricuspid valve incompetence [Fatal]
  - Ventricular hypertrophy [Fatal]
  - Septic embolus [Fatal]
  - Atrial septal defect [Fatal]
  - Endocarditis bacterial [Fatal]
  - Generalised oedema [Fatal]
  - Hypovolaemia [Fatal]
  - Osteomyelitis [Fatal]
  - Gait disturbance [Unknown]
  - Decubitus ulcer [Unknown]
  - Rib fracture [Unknown]
  - Abscess limb [Unknown]
  - Local swelling [Unknown]
  - Erythema [Unknown]
  - Diarrhoea [Unknown]
  - Gastrointestinal sounds abnormal [Unknown]
  - Gastritis [Unknown]
  - Arthropathy [Unknown]
  - Wound [Unknown]
  - Hypotonia [Unknown]
  - Blood pressure systolic decreased [Unknown]
  - Gliosis [Unknown]
  - Rash [Unknown]
  - Papule [Unknown]
  - Scab [Unknown]
  - Excoriation [Unknown]
  - Prurigo [Unknown]
  - Somnolence [Unknown]
  - Tenosynovitis [Unknown]
  - Arteriosclerosis [Unknown]
  - Arthralgia [Unknown]
  - Soft tissue inflammation [Unknown]
  - Pleural effusion [Unknown]
  - Osteopenia [Unknown]
  - Vomiting [Unknown]
  - Skin mass [Unknown]
  - Drug hypersensitivity [Unknown]
  - Sepsis [Fatal]
  - Septic shock [Fatal]
  - Acidosis [Fatal]
  - Acute respiratory failure [Fatal]
  - Staphylococcal bacteraemia [Fatal]
  - Arthritis bacterial [Fatal]
